FAERS Safety Report 7677266-8 (Version None)
Quarter: 2011Q3

REPORT INFORMATION
  Report Type: 
  Country: None (occurrence: None)
  Receive Date: 20110808
  Receipt Date: 20081106
  Transmission Date: 20111222
  Serious: Yes (Death, Hospitalization)
  Sender: FDA-Public Use
  Company Number: 2008EU002490

PATIENT
  Age: 20 Month
  Sex: Female
  Weight: 9 kg

DRUGS (14)
  1. ALDACTONE [Concomitant]
  2. EUPRESSYL (URAPIDIL HYDROCHLORIDE) [Concomitant]
  3. ISRADIPINE [Concomitant]
  4. NICARDIPINE (NICARDIPINE) FORMULATION UNKNOWN, UNKNOWN [Suspect]
     Indication: HYPERTENSION
     Dosage: 30 MG, UID/QD, IV NOS; UNKNOWN/D, IV NOS
     Route: 042
     Dates: start: 20080921, end: 20081005
  5. NICARDIPINE (NICARDIPINE) FORMULATION UNKNOWN, UNKNOWN [Suspect]
     Indication: HYPERTENSION
     Dosage: 30 MG, UID/QD, IV NOS; UNKNOWN/D, IV NOS
     Route: 042
     Dates: start: 20081003
  6. CYCLOSPORINE [Suspect]
     Indication: TRANSPLANT
     Dosage: 20 MG, TID, ORAL; 40 MG, UID/QD, IV NOS
     Route: 048
     Dates: start: 20081001, end: 20081003
  7. CYCLOSPORINE [Suspect]
     Indication: TRANSPLANT
     Dosage: 20 MG, TID, ORAL; 40 MG, UID/QD, IV NOS
     Route: 048
     Dates: start: 20080918, end: 20081002
  8. PROGRAF [Suspect]
     Indication: TRANSPLANT
     Dosage: 1.5 MG, UID/QD, ORAL; 1.5 MG, BID, ORAL; 1.5 MG, UID/QD, ORAL; 0.75 MG/UID/QD; 1 MG, UID/QD
     Route: 048
     Dates: start: 20081014, end: 20081014
  9. PROGRAF [Suspect]
     Indication: TRANSPLANT
     Dosage: 1.5 MG, UID/QD, ORAL; 1.5 MG, BID, ORAL; 1.5 MG, UID/QD, ORAL; 0.75 MG/UID/QD; 1 MG, UID/QD
     Route: 048
     Dates: start: 20081020
  10. PROGRAF [Suspect]
     Indication: TRANSPLANT
     Dosage: 1.5 MG, UID/QD, ORAL; 1.5 MG, BID, ORAL; 1.5 MG, UID/QD, ORAL; 0.75 MG/UID/QD; 1 MG, UID/QD
     Route: 048
     Dates: start: 20081005, end: 20081006
  11. PROGRAF [Suspect]
     Indication: TRANSPLANT
     Dosage: 1.5 MG, UID/QD, ORAL; 1.5 MG, BID, ORAL; 1.5 MG, UID/QD, ORAL; 0.75 MG/UID/QD; 1 MG, UID/QD
     Route: 048
     Dates: start: 20081014, end: 20081014
  12. PROGRAF [Suspect]
     Indication: TRANSPLANT
     Dosage: 1.5 MG, UID/QD, ORAL; 1.5 MG, BID, ORAL; 1.5 MG, UID/QD, ORAL; 0.75 MG/UID/QD; 1 MG, UID/QD
     Route: 048
     Dates: start: 20081004, end: 20081004
  13. LASILIX (FUROSEMIDE SODIUM) [Concomitant]
  14. PROPRANOLOL [Concomitant]

REACTIONS (6)
  - IMMUNOSUPPRESSANT DRUG LEVEL INCREASED [None]
  - CONDITION AGGRAVATED [None]
  - CLONIC CONVULSION [None]
  - DRUG INTERACTION [None]
  - HYPERTENSION [None]
  - COMPLICATIONS OF TRANSPLANT SURGERY [None]
